FAERS Safety Report 6533166-8 (Version None)
Quarter: 2010Q1

REPORT INFORMATION
  Report Type: 
  Country: None (occurrence: None)
  Receive Date: 20100111
  Receipt Date: 20100104
  Transmission Date: 20100710
  Serious: Yes (Death)
  Sender: FDA-Public Use
  Company Number: IN-BRISTOL-MYERS SQUIBB COMPANY-14919740

PATIENT
  Age: 10 Year
  Sex: Female

DRUGS (8)
  1. AMBISOME [Suspect]
  2. AMIKACIN SULFATE [Suspect]
  3. DEXAMETHASONE [Suspect]
  4. VINCRISTINE [Suspect]
  5. ASPARAGINASE [Suspect]
  6. METHOTREXATE [Suspect]
  7. VANCOMYCIN [Suspect]
  8. CEFTRIAXONE [Concomitant]

REACTIONS (1)
  - FUNGAL INFECTION [None]
